FAERS Safety Report 5900644-1 (Version None)
Quarter: 2008Q3

REPORT INFORMATION
  Report Type: 
  Country: None (occurrence: None)
  Receive Date: 20080926
  Receipt Date: 20080916
  Transmission Date: 20090109
  Serious: Yes (Other)
  Sender: FDA-Public Use
  Company Number: CN-PFIZER INC-2008078481

PATIENT
  Age: 8 Year
  Weight: 33 kg

DRUGS (1)
  1. ZITHROMAX [Suspect]
     Indication: PNEUMONIA MYCOPLASMAL
     Route: 048
     Dates: start: 20080801, end: 20080901

REACTIONS (2)
  - ASTHMA [None]
  - RASH [None]
